FAERS Safety Report 13778680 (Version 3)
Quarter: 2018Q2

REPORT INFORMATION
  Report Type: Spontaneous
  Country: US (occurrence: US)
  Receive Date: 20170721
  Receipt Date: 20180528
  Transmission Date: 20180711
  Serious: No
  Sender: FDA-Public Use
  Company Number: US-BRISTOL-MYERS SQUIBB COMPANY-BMS-2017-064788

PATIENT
  Sex: Male
  Weight: 155.1 kg

DRUGS (2)
  1. YERVOY [Suspect]
     Active Substance: IPILIMUMAB
     Indication: PRODUCT USED FOR UNKNOWN INDICATION
     Dosage: 1450 MG, Q3WK
     Route: 042
     Dates: start: 20170714
  2. YERVOY [Suspect]
     Active Substance: IPILIMUMAB
     Indication: MALIGNANT MELANOMA
     Dosage: 1510 MG, Q3WK
     Route: 042
     Dates: start: 20170512, end: 20170623

REACTIONS (1)
  - Headache [Not Recovered/Not Resolved]
